FAERS Safety Report 4315732-3 (Version None)
Quarter: 2004Q1

REPORT INFORMATION
  Report Type: 
  Country: None (occurrence: None)
  Receive Date: 20040310
  Receipt Date: 20040301
  Transmission Date: 20041129
  Serious: Yes (Life-Threatening)
  Sender: FDA-Public Use
  Company Number: 2003-05-0114

PATIENT
  Age: 38 Year
  Sex: Female

DRUGS (15)
  1. AERIUS (DESLORATADINE) TABLETS ^LIKE CLARINEX^ [Suspect]
     Indication: PRURITUS
     Dosage: 10 MG Q DAY ORAL
     Route: 048
     Dates: start: 20030108, end: 20030116
  2. TAVEGIL TABLETS [Suspect]
     Indication: PRURITUS
     Dosage: 1 TAB TID ORAL
     Route: 048
     Dates: start: 20030108, end: 20030116
  3. TAVEGIL TABLETS [Suspect]
     Indication: PRURITUS
     Dosage: 1 TAB TID ORAL
     Route: 048
     Dates: start: 20011001
  4. DIFLUCAN [Suspect]
     Indication: ORAL CANDIDIASIS
     Dosage: 400 MG QD INTRAVENOUS
     Route: 042
     Dates: start: 20030115, end: 20030116
  5. ZYLORIC (ALLOPURINOL) TABLETS [Concomitant]
  6. RANITIDINE [Concomitant]
  7. TAVOR TABLETS [Concomitant]
  8. CALCIUM EFFERVESCENT TABLETS [Concomitant]
  9. VIGANTOLETTEN TABLETS [Concomitant]
  10. TAVANIC (LEVOFLOXACIN) TABLETS [Concomitant]
  11. KALINOR EFFERVESCENT TABLETS [Concomitant]
  12. ALDACTONE [Concomitant]
  13. NEUPOGEN [Concomitant]
  14. LORAZEPAM [Concomitant]
  15. MEROPENAM [Concomitant]

REACTIONS (5)
  - HEPATIC ENZYME INCREASED [None]
  - HEPATIC FUNCTION ABNORMAL [None]
  - HEPATOTOXICITY [None]
  - INTERNATIONAL NORMALISED RATIO ABNORMAL [None]
  - PYREXIA [None]
